FAERS Safety Report 23518660 (Version 2)
Quarter: 2024Q1

REPORT INFORMATION
  Report Type: Spontaneous
  Country: CN (occurrence: CN)
  Receive Date: 20240213
  Receipt Date: 20240221
  Transmission Date: 20240409
  Serious: Yes (Other)
  Sender: FDA-Public Use
  Company Number: CN-PFIZER INC-PV202400019250

PATIENT
  Age: 4 Month
  Sex: Male
  Weight: 9 kg

DRUGS (2)
  1. ZITHROMAX [Suspect]
     Active Substance: AZITHROMYCIN DIHYDRATE
     Indication: Anti-infective therapy
     Dosage: 0.09 G, 1X/DAY
     Route: 048
     Dates: start: 20240126, end: 20240128
  2. OSELTAMIVIR PHOSPHATE [Suspect]
     Active Substance: OSELTAMIVIR PHOSPHATE
     Indication: Antiviral treatment
     Dosage: 22.5 MG, 2X/DAY
     Route: 048
     Dates: start: 20240129, end: 20240203

REACTIONS (2)
  - Haematochezia [Recovering/Resolving]
  - Infantile diarrhoea [Recovering/Resolving]

NARRATIVE: CASE EVENT DATE: 20240128
